FAERS Safety Report 17806903 (Version 1)
Quarter: 2020Q2

REPORT INFORMATION
  Report Type: Spontaneous
  Country: UG (occurrence: UG)
  Receive Date: 20200519
  Receipt Date: 20200519
  Transmission Date: 20200714
  Serious: Yes (Other)
  Sender: FDA-Public Use
  Company Number: None

PATIENT
  Age: 26 Year
  Sex: Female
  Weight: 48 kg

DRUGS (1)
  1. BENZAC 5%.BENZOYL PEROXIDE [Suspect]
     Active Substance: BENZOYL PEROXIDE
     Indication: ACNE
     Dates: start: 20150401, end: 20160731

REACTIONS (16)
  - Premature ageing [None]
  - Skin disorder [None]
  - Sunburn [None]
  - Pruritus [None]
  - Skin exfoliation [None]
  - Skin hyperpigmentation [None]
  - Product label issue [None]
  - Acne [None]
  - Skin atrophy [None]
  - Facial wasting [None]
  - Skin texture abnormal [None]
  - Dry skin [None]
  - Skin laceration [None]
  - Self esteem decreased [None]
  - Skin discolouration [None]
  - Fatigue [None]

NARRATIVE: CASE EVENT DATE: 20160101
